FAERS Safety Report 8288922-5 (Version None)
Quarter: 2012Q2

REPORT INFORMATION
  Report Type: 
  Country: None (occurrence: None)
  Receive Date: 20120412
  Receipt Date: 20120402
  Transmission Date: 20120825
  Serious: Yes (Death, Life-Threatening, Hospitalization, Disabling, Other)
  Sender: FDA-Public Use
  Company Number: 2009AL004117

PATIENT
  Age: 68 Year
  Sex: Female
  Weight: 104.3273 kg

DRUGS (44)
  1. TOPROL-XL [Concomitant]
  2. REGLAN [Concomitant]
  3. NYSTATIN [Concomitant]
  4. MILK OF MAGNESIA TAB [Concomitant]
  5. COUMADIN [Concomitant]
  6. BETAPACE [Concomitant]
  7. CEPHALEXIN [Concomitant]
  8. DIGOXIN [Suspect]
     Indication: HEART RATE IRREGULAR
     Dosage: 125 MCG;QD;PO
     Route: 048
     Dates: start: 20030320, end: 20080303
  9. PYRIDOXINE HCL [Concomitant]
  10. IRON [Concomitant]
  11. DARVOCET [Concomitant]
  12. RYTHMOL [Concomitant]
  13. FERROUS SULFATE TAB [Concomitant]
  14. RIFAMPIN [Concomitant]
  15. AMIODARONE HCL [Concomitant]
  16. LASIX [Concomitant]
  17. SLO MAG [Concomitant]
  18. PREVACID [Concomitant]
  19. PROCAN SR [Concomitant]
  20. METOCLOPRAMIDE HYDROCHLORIDE [Concomitant]
  21. LEVOTHYROXINE SODIUM [Concomitant]
  22. CLARINEX [Concomitant]
  23. ALTACE [Concomitant]
  24. MICRO-K [Concomitant]
  25. TRANSERM NITRO [Concomitant]
  26. INH [Concomitant]
  27. ATACAND [Concomitant]
  28. LISINOPRIL [Concomitant]
  29. ZOSYN [Concomitant]
  30. KLOR-CON [Concomitant]
  31. CAPTOPRIL [Concomitant]
  32. WARFARIN SODIUM [Concomitant]
  33. SYNTHROID [Concomitant]
  34. PROCRIT [Concomitant]
  35. VANCOMYCIN [Concomitant]
  36. PERIDEX [Concomitant]
  37. CAPOTEN [Concomitant]
  38. PYRAZINAMIDE [Concomitant]
  39. PROPULSID [Concomitant]
  40. COLACE [Concomitant]
  41. ELCON [Concomitant]
  42. MAGNESIUM HYDROXIDE TAB [Concomitant]
  43. COREG [Concomitant]
  44. POTASSIUM CHLORIDE [Concomitant]

REACTIONS (63)
  - UNEVALUABLE EVENT [None]
  - SURGERY [None]
  - DYSPNOEA [None]
  - BLOOD CREATINE INCREASED [None]
  - TRICUSPID VALVE INCOMPETENCE [None]
  - LEFT VENTRICULAR HYPERTROPHY [None]
  - HYPOKINESIA [None]
  - LEFT ATRIAL DILATATION [None]
  - BLOOD ALKALINE PHOSPHATASE INCREASED [None]
  - BLOOD THYROID STIMULATING HORMONE INCREASED [None]
  - RENAL FAILURE [None]
  - MULTIPLE INJURIES [None]
  - ANAEMIA [None]
  - SEPTIC SHOCK [None]
  - MITRAL VALVE DISEASE [None]
  - MUSCULAR WEAKNESS [None]
  - JUGULAR VEIN DISTENSION [None]
  - HYPOTHYROIDISM [None]
  - HEART SOUNDS ABNORMAL [None]
  - ANAEMIA OF CHRONIC DISEASE [None]
  - HYPERTENSION [None]
  - PYREXIA [None]
  - RENAL FAILURE CHRONIC [None]
  - SKIN HYPERPIGMENTATION [None]
  - ORTHOPNOEA [None]
  - HYPOTENSION [None]
  - TACHYCARDIA [None]
  - BRONCHOSPASM [None]
  - OEDEMA PERIPHERAL [None]
  - CARDIAC VALVE DISEASE [None]
  - GASTROINTESTINAL HAEMORRHAGE [None]
  - MYXOEDEMA [None]
  - ECONOMIC PROBLEM [None]
  - ECZEMA [None]
  - MITRAL VALVE INCOMPETENCE [None]
  - LOBAR PNEUMONIA [None]
  - DYSPHAGIA [None]
  - SINUS CONGESTION [None]
  - BLOOD UREA INCREASED [None]
  - LYMPHADENOPATHY [None]
  - ARRHYTHMIA [None]
  - SEPSIS [None]
  - OSTEOARTHRITIS [None]
  - WHITE BLOOD CELL COUNT INCREASED [None]
  - PERICARDIAL EFFUSION [None]
  - CARDIAC MURMUR [None]
  - HYPERGAMMAGLOBULINAEMIA [None]
  - HYPERURICAEMIA [None]
  - OBESITY [None]
  - PULMONARY HYPERTENSION [None]
  - CARDIAC FAILURE CONGESTIVE [None]
  - NOCTURNAL DYSPNOEA [None]
  - BLOOD PRESSURE DECREASED [None]
  - TOXICITY TO VARIOUS AGENTS [None]
  - TREATMENT NONCOMPLIANCE [None]
  - OEDEMA [None]
  - ASTHENIA [None]
  - WEIGHT INCREASED [None]
  - HAEMATOCHEZIA [None]
  - CARDIAC FAILURE [None]
  - ATELECTASIS [None]
  - PLEURAL EFFUSION [None]
  - RESPIRATORY FAILURE [None]
